FAERS Safety Report 9681638 (Version 2)
Quarter: 2013Q4

REPORT INFORMATION
  Report Type: Spontaneous
  Country: US (occurrence: US)
  Receive Date: 20131111
  Receipt Date: 20131129
  Transmission Date: 20140711
  Serious: Yes (Death)
  Sender: FDA-Public Use
  Company Number: US-ROCHE-1301928

PATIENT
  Sex: Female

DRUGS (2)
  1. XELODA [Suspect]
     Dosage: 2 MORNING, 1 EVENING - 14 DAYS ON, 7 DAYS OFF
     Route: 065
     Dates: start: 20121207
  2. METHOTREXATE [Concomitant]

REACTIONS (1)
  - Disease progression [Fatal]
